FAERS Safety Report 24111083 (Version 1)
Quarter: 2024Q3

REPORT INFORMATION
  Report Type: Spontaneous
  Country: US (occurrence: US)
  Receive Date: 20240718
  Receipt Date: 20240718
  Transmission Date: 20241016
  Serious: Yes (Other)
  Sender: NOVARTIS
  Company Number: US-002147023-NVSC2024US144526

PATIENT
  Age: 69 Year
  Sex: Female

DRUGS (2)
  1. TRAMETINIB [Suspect]
     Active Substance: TRAMETINIB
     Indication: Cholangiocarcinoma
     Dosage: 2 MG PO QD
     Route: 065
  2. PEMBROLIZUMAB [Concomitant]
     Active Substance: PEMBROLIZUMAB
     Indication: Cholangiocarcinoma
     Dosage: UNK
     Route: 065

REACTIONS (5)
  - Ocular hypertension [Recovering/Resolving]
  - Subretinal fluid [Unknown]
  - Skin irritation [Unknown]
  - Product use in unapproved indication [Unknown]
  - Blepharitis [Unknown]
